FAERS Safety Report 4343791-0 (Version None)
Quarter: 2004Q2

REPORT INFORMATION
  Report Type: 
  Country: None (occurrence: None)
  Receive Date: 20040419
  Receipt Date: 20040412
  Transmission Date: 20050107
  Serious: Yes (Other)
  Sender: FDA-Public Use
  Company Number: 040016

PATIENT
  Age: 39 Year
  Sex: Female
  Weight: 74.8435 kg

DRUGS (2)
  1. MIRALAX [Suspect]
     Indication: CONSTIPATION
     Dosage: 17 GRAMS EOD PO
     Route: 048
  2. LOESTRIN 1.5/30 [Concomitant]

REACTIONS (2)
  - HYPERSENSITIVITY [None]
  - TEMPORAL ARTERITIS [None]
